FAERS Safety Report 8188893-6 (Version None)
Quarter: 2012Q1

REPORT INFORMATION
  Report Type: 
  Country: None (occurrence: None)
  Receive Date: 20120306
  Receipt Date: 20120301
  Transmission Date: 20120608
  Serious: Yes (Death)
  Sender: FDA-Public Use
  Company Number: US-GILEAD-2012-0051538

PATIENT
  Sex: Male

DRUGS (2)
  1. LETAIRIS [Suspect]
     Indication: PULMONARY HYPERTENSION
     Dosage: 5 MG, UNK
     Route: 048
     Dates: start: 20110607, end: 20120201
  2. LETAIRIS [Suspect]
     Indication: ANTINUCLEAR ANTIBODY POSITIVE

REACTIONS (1)
  - PULMONARY ARTERIAL HYPERTENSION [None]
